FAERS Safety Report 6107855-3 (Version None)
Quarter: 2009Q1

REPORT INFORMATION
  Report Type: 
  Country: None (occurrence: None)
  Receive Date: 20090309
  Receipt Date: 20090303
  Transmission Date: 20090719
  Serious: No
  Sender: FDA-Public Use
  Company Number: US-BAYER-US-2007-010059

PATIENT
  Sex: Female

DRUGS (1)
  1. MAGNEVIST [Suspect]

REACTIONS (1)
  - DRUG EXPOSURE DURING PREGNANCY [None]
